FAERS Safety Report 6960942-X (Version None)
Quarter: 2010Q3

REPORT INFORMATION
  Report Type: 
  Country: None (occurrence: None)
  Receive Date: 20100901
  Receipt Date: 20100824
  Transmission Date: 20110219
  Serious: Yes (Death, Hospitalization, Other)
  Sender: FDA-Public Use
  Company Number: US-BAXTER-2010BH019303

PATIENT
  Sex: Female

DRUGS (1)
  1. DIANEAL [Suspect]
     Indication: PERITONEAL DIALYSIS
     Route: 033
     Dates: start: 20070701, end: 20100813

REACTIONS (5)
  - CALCIPHYLAXIS [None]
  - CARDIO-RESPIRATORY ARREST [None]
  - DEATH [None]
  - LARGE INTESTINE PERFORATION [None]
  - SKIN ULCER [None]
